FAERS Safety Report 24913600 (Version 3)
Quarter: 2025Q3

REPORT INFORMATION
  Report Type: Report from Study
  Country: US (occurrence: US)
  Receive Date: 20250201
  Receipt Date: 20250803
  Transmission Date: 20251020
  Serious: Yes (Death, Hospitalization, Other)
  Sender: ALEXION PHARMACEUTICALS
  Company Number: US-AstraZeneca-CH-00795127A

PATIENT
  Age: 88 Year
  Sex: Female

DRUGS (1)
  1. DAPAGLIFLOZIN\METFORMIN HYDROCHLORIDE [Suspect]
     Active Substance: DAPAGLIFLOZIN\METFORMIN HYDROCHLORIDE
     Route: 065

REACTIONS (3)
  - Sepsis [Fatal]
  - Pneumonia [Fatal]
  - Cardiac failure [Unknown]

NARRATIVE: CASE EVENT DATE: 20250117
